FAERS Safety Report 6532252-6 (Version None)
Quarter: 2010Q1

REPORT INFORMATION
  Report Type: 
  Country: None (occurrence: None)
  Receive Date: 20100108
  Receipt Date: 20100106
  Transmission Date: 20100710
  Serious: Yes (Death, Hospitalization, Other)
  Sender: FDA-Public Use
  Company Number: PHEH2009US13700

PATIENT
  Sex: Female

DRUGS (1)
  1. RECLAST [Suspect]
     Indication: OSTEOPOROSIS POSTMENOPAUSAL
     Dosage: UNK
     Dates: start: 20081101

REACTIONS (11)
  - ASTHENIA [None]
  - BONE DISORDER [None]
  - DISEASE PROGRESSION [None]
  - FALL [None]
  - FEMUR FRACTURE [None]
  - HEPATIC FAILURE [None]
  - HIP ARTHROPLASTY [None]
  - PNEUMONIA STAPHYLOCOCCAL [None]
  - RENAL FAILURE [None]
  - SEPSIS [None]
  - SPINAL COLUMN STENOSIS [None]
